FAERS Safety Report 10510505 (Version 5)
Quarter: 2015Q1

REPORT INFORMATION
  Report Type: Spontaneous
  Country: US (occurrence: None)
  Receive Date: 20141008
  Receipt Date: 20150115
  Transmission Date: 20150720
  Serious: Yes (Other)
  Sender: FDA-Public Use
  Company Number: 2014-US-012678

PATIENT
  Age: 54 Year
  Sex: Female

DRUGS (2)
  1. XYREM [Suspect]
     Active Substance: SODIUM OXYBATE
     Indication: CATAPLEXY
     Route: 048
     Dates: start: 201409
  2. XYREM [Suspect]
     Active Substance: SODIUM OXYBATE
     Indication: NARCOLEPSY
     Route: 048
     Dates: start: 201409

REACTIONS (11)
  - Sinusitis [None]
  - Insomnia [None]
  - Ear infection [None]
  - Subcutaneous abscess [None]
  - Condition aggravated [None]
  - Seizure [None]
  - Blood pressure increased [None]
  - Rash [None]
  - Lymphadenopathy [None]
  - Bronchitis [None]
  - Neck pain [None]

NARRATIVE: CASE EVENT DATE: 201409
